FAERS Safety Report 20098044 (Version 2)
Quarter: 2021Q4

REPORT INFORMATION
  Report Type: Report from Study
  Country: US (occurrence: None)
  Receive Date: 20211122
  Receipt Date: 20211202
  Transmission Date: 20220303
  Serious: Yes (Death)
  Sender: FDA-Public Use
  Company Number: 2021A812261

PATIENT
  Age: 20536 Day
  Sex: Male

DRUGS (4)
  1. LYNPARZA [Suspect]
     Active Substance: OLAPARIB
     Indication: Hepatic cancer
     Route: 048
     Dates: start: 202110
  2. LYNPARZA [Suspect]
     Active Substance: OLAPARIB
     Indication: Retroperitoneal cancer
     Route: 048
     Dates: start: 202110
  3. LYNPARZA [Suspect]
     Active Substance: OLAPARIB
     Indication: Malignant peritoneal neoplasm
     Route: 048
     Dates: start: 202110
  4. LYNPARZA [Suspect]
     Active Substance: OLAPARIB
     Indication: Retroperitoneal cancer
     Route: 048
     Dates: start: 202110

REACTIONS (1)
  - Death [Fatal]

NARRATIVE: CASE EVENT DATE: 20211024
